FAERS Safety Report 7389664-0 (Version None)
Quarter: 2011Q2

REPORT INFORMATION
  Report Type: 
  Country: None (occurrence: None)
  Receive Date: 20110401
  Receipt Date: 20091124
  Transmission Date: 20111010
  Serious: No
  Sender: FDA-Public Use
  Company Number: 2009BI038789

PATIENT
  Age: 48 Year
  Sex: Female

DRUGS (3)
  1. AVONEX [Concomitant]
     Indication: MULTIPLE SCLEROSIS
     Route: 030
  2. PAIN MEDICATION (NOS) [Concomitant]
     Indication: HEADACHE
  3. TYSABRI [Suspect]
     Indication: MULTIPLE SCLEROSIS
     Route: 042
     Dates: start: 20091112

REACTIONS (7)
  - FEELING ABNORMAL [None]
  - PAIN IN EXTREMITY [None]
  - HEADACHE [None]
  - MOBILITY DECREASED [None]
  - BALANCE DISORDER [None]
  - ASTHENIA [None]
  - FATIGUE [None]
